FAERS Safety Report 9412386 (Version 2)
Quarter: 2013Q3

REPORT INFORMATION
  Report Type: Spontaneous
  Country: JP (occurrence: JP)
  Receive Date: 20130722
  Receipt Date: 20130814
  Transmission Date: 20140515
  Serious: Yes (Other)
  Sender: FDA-Public Use
  Company Number: JP-ROCHE-1250888

PATIENT
  Age: 80 Year
  Sex: Male

DRUGS (4)
  1. ROCEPHIN [Suspect]
     Indication: PNEUMONIA
     Dosage: DOSAGE IS UNCERTAIN.
     Route: 042
     Dates: start: 20130121, end: 20130127
  2. CLARITHROMYCIN [Suspect]
     Indication: PNEUMONIA
     Route: 048
     Dates: start: 20130128, end: 20130218
  3. GENINAX [Suspect]
     Indication: PNEUMONIA
     Route: 048
     Dates: start: 20130128, end: 20130218
  4. LOXONIN [Suspect]
     Indication: PNEUMONIA
     Route: 048
     Dates: start: 20130128, end: 20130218

REACTIONS (1)
  - Interstitial lung disease [Recovered/Resolved with Sequelae]
